FAERS Safety Report 4481891-5 (Version None)
Quarter: 2004Q4

REPORT INFORMATION
  Report Type: 
  Country: None (occurrence: None)
  Receive Date: 20041022
  Receipt Date: 20041011
  Transmission Date: 20050328
  Serious: Yes (Hospitalization)
  Sender: FDA-Public Use
  Company Number: DE-JNJFOC-20041003654

PATIENT
  Age: 74 Year
  Sex: Female

DRUGS (5)
  1. INFLIXIMAB [Suspect]
     Indication: RHEUMATOID ARTHRITIS
     Dosage: DOSE WAS ADMINISTERED Q6W OR Q8W
     Route: 042
  2. METHOTREXATE [Concomitant]
  3. PREDNISOLONE [Concomitant]
     Dosage: INITIAL DOSES UNKNOWN.
     Route: 049
  4. PREDNISOLONE [Concomitant]
     Route: 049
  5. VIGANTOLETTEN [Concomitant]
     Indication: OSTEOPOROSIS
     Dosage: VITAMIN D3

REACTIONS (9)
  - DEEP VEIN THROMBOSIS [None]
  - ELECTROLYTE IMBALANCE [None]
  - FALL [None]
  - GASTRIC ULCER [None]
  - HERPES ZOSTER [None]
  - PULMONARY EMBOLISM [None]
  - REFLUX OESOPHAGITIS [None]
  - RHABDOMYOLYSIS [None]
  - TIBIA FRACTURE [None]
